FAERS Safety Report 17330771 (Version 1)
Quarter: 2020Q1

REPORT INFORMATION
  Report Type: Report from Study
  Country: CA (occurrence: CA)
  Receive Date: 20200128
  Receipt Date: 20200128
  Transmission Date: 20200409
  Serious: Yes (Other)
  Sender: FDA-Public Use
  Company Number: CA-JNJFOC-20190734413

PATIENT
  Sex: Female
  Weight: 76.2 kg

DRUGS (1)
  1. STELARA [Suspect]
     Active Substance: USTEKINUMAB
     Indication: PSORIASIS
     Route: 058
     Dates: start: 20190206

REACTIONS (3)
  - Psoriasis [Unknown]
  - Lyme disease [Unknown]
  - Fungal infection [Unknown]

NARRATIVE: CASE EVENT DATE: 2019
